FAERS Safety Report 6210969-0 (Version None)
Quarter: 2009Q2

REPORT INFORMATION
  Report Type: 
  Country: None (occurrence: None)
  Receive Date: 20090528
  Receipt Date: 20090528
  Transmission Date: 20091009
  Serious: Yes (Other)
  Sender: FDA-Public Use
  Company Number: None

PATIENT
  Age: 4 Year
  Sex: Female
  Weight: 15.8759 kg

DRUGS (1)
  1. COMPOUND W [Suspect]
     Indication: SKIN PAPILLOMA
     Dosage: SUFFICIENT DOSE TO COVER WARTS ONCE TOP
     Route: 061
     Dates: start: 20090522, end: 20090522

REACTIONS (7)
  - APPLICATION SITE BLEEDING [None]
  - APPLICATION SITE ERYTHEMA [None]
  - APPLICATION SITE EXFOLIATION [None]
  - APPLICATION SITE IRRITATION [None]
  - APPLICATION SITE SCAB [None]
  - APPLICATION SITE ULCER [None]
  - WOUND [None]
